FAERS Safety Report 4375778-6 (Version None)
Quarter: 2004Q2

REPORT INFORMATION
  Report Type: 
  Country: None (occurrence: None)
  Receive Date: 20040609
  Receipt Date: 20040609
  Transmission Date: 20050107
  Serious: Yes (Hospitalization)
  Sender: FDA-Public Use
  Company Number: None

PATIENT
  Sex: Male

DRUGS (16)
  1. INSULIN [Suspect]
     Indication: DIABETES MELLITUS NON-INSULIN-DEPENDENT
     Dosage: PTA
  2. GLIPIZIDE [Suspect]
  3. HEPARIN [Concomitant]
  4. LANSOPRAZOLE [Concomitant]
  5. DOCUSATE [Concomitant]
  6. FERROUS SULFATE TAB [Concomitant]
  7. SENNA [Concomitant]
  8. AMLODIPINE [Concomitant]
  9. CLOPIDOGREL BISULFATE [Concomitant]
  10. BISACODYL [Concomitant]
  11. CARVEDILOL [Concomitant]
  12. HYDRALYZINE [Concomitant]
  13. CLINDAMYCIN [Concomitant]
  14. CLONIDINE HCL [Concomitant]
  15. LEVOFLOXACIN [Concomitant]
  16. DIPHENHYDRAMINE HCL [Concomitant]

REACTIONS (9)
  - BLOOD GLUCOSE DECREASED [None]
  - BLOOD GLUCOSE INCREASED [None]
  - BLOOD PRESSURE SYSTOLIC INCREASED [None]
  - DEPRESSED LEVEL OF CONSCIOUSNESS [None]
  - HEART RATE DECREASED [None]
  - HYPERHIDROSIS [None]
  - LETHARGY [None]
  - MENTAL STATUS CHANGES [None]
  - RESPIRATORY RATE INCREASED [None]
